FAERS Safety Report 4333044-9 (Version None)
Quarter: 2004Q2

REPORT INFORMATION
  Report Type: 
  Country: None (occurrence: None)
  Receive Date: 20040406
  Receipt Date: 20040330
  Transmission Date: 20050107
  Serious: Yes (Hospitalization)
  Sender: FDA-Public Use
  Company Number: FR-ROCHE-363292

PATIENT
  Age: 78 Year
  Sex: Female

DRUGS (4)
  1. RIVOTRIL [Suspect]
     Indication: HERPES ZOSTER
     Route: 048
  2. SKENAN LP [Suspect]
     Route: 048
  3. SKENAN LP [Suspect]
     Route: 048
  4. ACTISKENAN [Suspect]
     Route: 048

REACTIONS (3)
  - CONFUSIONAL STATE [None]
  - DISORIENTATION [None]
  - SOMNOLENCE [None]
